FAERS Safety Report 6976238-6 (Version None)
Quarter: 2010Q3

REPORT INFORMATION
  Report Type: 
  Country: None (occurrence: None)
  Receive Date: 20100910
  Receipt Date: 20100901
  Transmission Date: 20110219
  Serious: Yes (Other)
  Sender: FDA-Public Use
  Company Number: US-PFIZER INC-2010111315

PATIENT
  Sex: Female
  Weight: 79.365 kg

DRUGS (3)
  1. DEPO-MEDROL [Suspect]
     Indication: ARTHRALGIA
     Dosage: UNK
     Dates: start: 20100818
  2. PRAVASTATIN SODIUM [Concomitant]
     Indication: DYSPEPSIA
     Dosage: UNK
  3. ATENOLOL [Concomitant]
     Indication: HYPERTENSION
     Dosage: UNK

REACTIONS (9)
  - ABDOMINAL DISCOMFORT [None]
  - ACNE [None]
  - BLOOD PRESSURE INCREASED [None]
  - DIZZINESS [None]
  - ERYTHEMA [None]
  - HEART RATE INCREASED [None]
  - HUNGER [None]
  - INSOMNIA [None]
  - MIGRAINE [None]
